FAERS Safety Report 4768074-6 (Version None)
Quarter: 2005Q3

REPORT INFORMATION
  Report Type: 
  Country: None (occurrence: None)
  Receive Date: 20050912
  Receipt Date: 20050912
  Transmission Date: 20060218
  Serious: Yes (Death)
  Sender: FDA-Public Use
  Company Number: None

PATIENT
  Sex: Female
  Weight: 41 kg

DRUGS (1)
  1. IRESSA [Suspect]
     Indication: RECTAL CANCER METASTATIC
     Dosage: 500MG   QD   PO
     Route: 048
     Dates: start: 20050718, end: 20050830

REACTIONS (1)
  - DEATH [None]
